FAERS Safety Report 10494215 (Version 2)
Quarter: 2015Q3

REPORT INFORMATION
  Report Type: Spontaneous
  Country: US (occurrence: US)
  Receive Date: 20141003
  Receipt Date: 20150706
  Transmission Date: 20151125
  Serious: Yes (Death, Other)
  Sender: FDA-Public Use
  Company Number: US-GLAXOSMITHKLINE-A1064583A

PATIENT
  Sex: Female

DRUGS (2)
  1. PROMACTA [Suspect]
     Active Substance: ELTROMBOPAG OLAMINE
     Dates: start: 20140203
  2. PROMACTA [Suspect]
     Active Substance: ELTROMBOPAG OLAMINE
     Dosage: 25 MG TABLETS, UNKNOWN DOSING
     Route: 065
     Dates: start: 20140203

REACTIONS (4)
  - Hospice care [Fatal]
  - Respiratory failure [Fatal]
  - Malaise [Fatal]
  - Cognitive disorder [Fatal]
